FAERS Safety Report 7794027-X (Version None)
Quarter: 2011Q4

REPORT INFORMATION
  Report Type: 
  Country: None (occurrence: None)
  Receive Date: 20111004
  Receipt Date: 20110926
  Transmission Date: 20120403
  Serious: Yes (Hospitalization)
  Sender: FDA-Public Use
  Company Number: US-BIOGENIDEC-2009BI040463

PATIENT
  Age: 60 Year
  Sex: Female

DRUGS (6)
  1. AVONEX [Suspect]
     Route: 030
     Dates: start: 20070501, end: 20070903
  2. AVONEX [Suspect]
     Route: 030
     Dates: start: 20090829
  3. REBIF [Concomitant]
     Indication: MULTIPLE SCLEROSIS
     Dates: end: 20060101
  4. AVONEX [Suspect]
     Indication: MULTIPLE SCLEROSIS
     Route: 030
     Dates: start: 19970812, end: 19990224
  5. AVONEX [Suspect]
     Route: 030
     Dates: start: 20000810, end: 20010214
  6. AVONEX [Suspect]
     Route: 030
     Dates: start: 20080108, end: 20090801

REACTIONS (6)
  - ASTHENIA [None]
  - CARPAL TUNNEL SYNDROME [None]
  - DYSPNOEA [None]
  - HEADACHE [None]
  - MOTOR DYSFUNCTION [None]
  - FATIGUE [None]
